FAERS Safety Report 4382513-4 (Version None)
Quarter: 2004Q2

REPORT INFORMATION
  Report Type: 
  Country: None (occurrence: None)
  Receive Date: 20040617
  Receipt Date: 20040604
  Transmission Date: 20050107
  Serious: Yes (Other)
  Sender: FDA-Public Use
  Company Number: 049-0981-990480

PATIENT
  Age: 51 Year
  Sex: Male
  Weight: 112 kg

DRUGS (7)
  1. ATORVASTATIN (ATORVASTATIN) [Suspect]
     Indication: CORONARY ARTERY DISEASE
     Dosage: SEE IMAGE, ORAL
     Route: 048
     Dates: start: 19990615, end: 19990901
  2. ATORVASTATIN (ATORVASTATIN) [Suspect]
     Indication: CORONARY ARTERY DISEASE
     Dosage: SEE IMAGE, ORAL
     Route: 048
     Dates: start: 19990902
  3. CAPTOPRIL [Concomitant]
  4. ISOSORBIDE DINITRATE [Concomitant]
  5. ACETYLSALICYLIC ACID SRT [Concomitant]
  6. MOLSIDOMINE (MOLSIDOMINE) [Concomitant]
  7. NITROGLYCERIN [Concomitant]

REACTIONS (1)
  - DIABETES MELLITUS [None]
